FAERS Safety Report 10273931 (Version 1)
Quarter: 2014Q3

REPORT INFORMATION
  Report Type: Spontaneous
  Country: US (occurrence: US)
  Receive Date: 20140702
  Receipt Date: 20140702
  Transmission Date: 20150326
  Serious: Yes (Other)
  Sender: FDA-Public Use
  Company Number: PHHY2014US081486

PATIENT
  Age: 63 Year
  Sex: Male

DRUGS (7)
  1. DEXILANT [Suspect]
     Active Substance: DEXLANSOPRAZOLE
     Dosage: UNK UKN, UNK
  2. BACTRIM DS [Suspect]
     Active Substance: SULFAMETHOXAZOLE\TRIMETHOPRIM
     Dosage: UNK UKN, UNK
  3. PROSCAR [Suspect]
     Active Substance: FINASTERIDE
     Dosage: UNK UKN, UNK
  4. MYRBETRIQ [Suspect]
     Active Substance: MIRABEGRON
     Dosage: UNK UKN, UNK
  5. TAMSULOSIN HYDROCHLORIDE. [Suspect]
     Active Substance: TAMSULOSIN HYDROCHLORIDE
     Dosage: UNK UKN, UNK
  6. BACLOFEN INTRATHECAL [Suspect]
     Active Substance: BACLOFEN
     Indication: MUSCLE SPASTICITY
     Dosage: 300 UG, DAILY
     Route: 037
  7. BACLOFEN. [Suspect]
     Active Substance: BACLOFEN
     Indication: MUSCLE SPASTICITY
     Dosage: UNK UKN, UNK
     Route: 048

REACTIONS (4)
  - Osteomyelitis [Unknown]
  - Granuloma [Unknown]
  - Hypoaesthesia [Unknown]
  - Movement disorder [Unknown]

NARRATIVE: CASE EVENT DATE: 20140616
